FAERS Safety Report 18985983 (Version 20)
Quarter: 2024Q1

REPORT INFORMATION
  Report Type: Report from Study
  Country: US (occurrence: US)
  Receive Date: 20210309
  Receipt Date: 20240320
  Transmission Date: 20240410
  Serious: Yes (Other)
  Sender: FDA-Public Use
  Company Number: US-SHIRE-US202026435

PATIENT
  Age: 45 Year
  Sex: Female
  Weight: 80 kg

DRUGS (21)
  1. HUMAN IMMUNOGLOBULIN G [Suspect]
     Active Substance: HUMAN IMMUNOGLOBULIN G
     Indication: Primary immunodeficiency syndrome
     Dosage: 12 GRAM, 1/WEEK
     Route: 058
     Dates: start: 20170504
  2. HUMAN IMMUNOGLOBULIN G [Suspect]
     Active Substance: HUMAN IMMUNOGLOBULIN G
     Indication: Immunodeficiency common variable
     Dosage: 12 GRAM, 1/WEEK
     Route: 058
     Dates: start: 20170505
  3. ACETAMINOPHEN [Concomitant]
     Active Substance: ACETAMINOPHEN
     Dosage: UNK
     Route: 065
  4. DIPHENHYDRAMINE [Concomitant]
     Active Substance: DIPHENHYDRAMINE
     Dosage: UNK
     Route: 065
  5. EPINEPHRINE [Concomitant]
     Active Substance: EPINEPHRINE
     Dosage: UNK
     Route: 065
  6. TYLENOL [Concomitant]
     Active Substance: ACETAMINOPHEN
     Dosage: UNK
     Route: 065
  7. BENADRYL [Concomitant]
     Active Substance: DIPHENHYDRAMINE HYDROCHLORIDE
     Dosage: UNK
     Route: 065
  8. ALEVE [Concomitant]
     Active Substance: NAPROXEN SODIUM
     Dosage: UNK
     Route: 065
  9. WELLBUTRIN [Concomitant]
     Active Substance: BUPROPION HYDROCHLORIDE
     Dosage: UNK
     Route: 065
  10. TRAZODONE HCL [Concomitant]
     Active Substance: TRAZODONE HYDROCHLORIDE
     Dosage: UNK
     Route: 065
  11. XANAX [Concomitant]
     Active Substance: ALPRAZOLAM
     Dosage: UNK
     Route: 065
  12. CALCIUM\VITAMIN D [Concomitant]
     Active Substance: CALCIUM\VITAMIN D
     Dosage: UNK
     Route: 065
  13. LEVOXYL [Concomitant]
     Active Substance: LEVOTHYROXINE SODIUM
     Dosage: UNK
     Route: 065
  14. BIOTIN [Concomitant]
     Active Substance: BIOTIN
     Dosage: UNK
     Route: 065
  15. MOTRIN IB [Concomitant]
     Active Substance: IBUPROFEN
     Dosage: UNK
     Route: 065
  16. WELLBUTRIN SR [Concomitant]
     Active Substance: BUPROPION HYDROCHLORIDE
     Dosage: UNK
     Route: 065
  17. ASMANEX HFA [Concomitant]
     Active Substance: MOMETASONE FUROATE
     Dosage: UNK
     Route: 065
  18. LEVOTHYROXINE [Concomitant]
     Active Substance: LEVOTHYROXINE\LEVOTHYROXINE SODIUM
     Dosage: UNK
     Route: 065
  19. OYSTER SHELL [Concomitant]
     Active Substance: OSTREA EDULIS SHELL
     Dosage: UNK
     Route: 065
  20. VITAMIN D3 [Concomitant]
     Active Substance: CHOLECALCIFEROL
     Dosage: UNK
     Route: 065
  21. DIPHENHYDRAMINE HYDROCHLORIDE [Concomitant]
     Active Substance: DIPHENHYDRAMINE HYDROCHLORIDE
     Dosage: UNK
     Route: 065

REACTIONS (40)
  - Pneumonia [Unknown]
  - Shoulder fracture [Unknown]
  - Infusion related reaction [Unknown]
  - Bronchial disorder [Unknown]
  - Illness [Unknown]
  - Needle issue [Unknown]
  - Urinary tract infection [Recovered/Resolved]
  - Weight decreased [Unknown]
  - Injection site bruising [Unknown]
  - Rotator cuff syndrome [Unknown]
  - Bronchitis [Unknown]
  - Fall [Unknown]
  - Post procedural infection [Unknown]
  - Gastrooesophageal reflux disease [Unknown]
  - COVID-19 [Recovering/Resolving]
  - Herpes zoster [Unknown]
  - Infection [Unknown]
  - Joint injury [Unknown]
  - Seasonal allergy [Unknown]
  - Asthma [Unknown]
  - Streptococcal infection [Unknown]
  - Upper respiratory tract infection [Unknown]
  - Oral pain [Unknown]
  - Root canal infection [Unknown]
  - Oral infection [Unknown]
  - Road traffic accident [Unknown]
  - Contusion [Unknown]
  - Infusion site induration [Unknown]
  - Feeling abnormal [Unknown]
  - Injection site swelling [Unknown]
  - Rash [Unknown]
  - Malaise [Unknown]
  - Infusion site pruritus [Unknown]
  - Urticaria [Unknown]
  - Infusion site pain [Unknown]
  - Infusion site discomfort [Unknown]
  - Migraine [Unknown]
  - Fatigue [Unknown]
  - Arthralgia [Unknown]
  - Nausea [Unknown]

NARRATIVE: CASE EVENT DATE: 20240131
